FAERS Safety Report 19071845 (Version 1)
Quarter: 2021Q1

REPORT INFORMATION
  Report Type: Spontaneous
  Country: US (occurrence: US)
  Receive Date: 20210330
  Receipt Date: 20210330
  Transmission Date: 20210420
  Serious: No
  Sender: FDA-Public Use
  Company Number: US-SA-2021SA104588

PATIENT
  Age: 50 Year
  Sex: Female

DRUGS (8)
  1. DUPIXENT [Suspect]
     Active Substance: DUPILUMAB
     Indication: DERMATITIS ATOPIC
     Dosage: 300 MG
     Route: 058
     Dates: start: 20210114
  2. FISH OIL [Concomitant]
     Active Substance: FISH OIL
  3. FOLIC ACID. [Concomitant]
     Active Substance: FOLIC ACID
  4. MILK THISTLE [SILYBUM MARIANUM] [Concomitant]
     Active Substance: DIETARY SUPPLEMENT\HERBALS\MILK THISTLE
  5. CLOBETASOL [Concomitant]
     Active Substance: CLOBETASOL
  6. DOXYCYCLINE. [Concomitant]
     Active Substance: DOXYCYCLINE
  7. AMPHETAMINE [Concomitant]
     Active Substance: AMPHETAMINE
  8. VITAMIN D3 [Concomitant]
     Active Substance: CHOLECALCIFEROL

REACTIONS (1)
  - Hot flush [Unknown]

NARRATIVE: CASE EVENT DATE: 202102
